FAERS Safety Report 14136008 (Version 3)
Quarter: 2018Q1

REPORT INFORMATION
  Report Type: Report from Study
  Country: US (occurrence: US)
  Receive Date: 20171027
  Receipt Date: 20180125
  Transmission Date: 20180508
  Serious: No
  Sender: FDA-Public Use
  Company Number: US-AMGEN-USASL2017150117

PATIENT
  Age: 61 Year
  Sex: Male
  Weight: 108.84 kg

DRUGS (2)
  1. REPATHA [Suspect]
     Active Substance: EVOLOCUMAB
     Indication: HYPERLIPIDAEMIA
     Dosage: 140 MG, Q2WK
     Route: 058
     Dates: start: 20170906
  2. NIACIN. [Concomitant]
     Active Substance: NIACIN
     Dosage: UNK

REACTIONS (4)
  - Flushing [Recovered/Resolved]
  - Nausea [Recovered/Resolved]
  - Decreased appetite [Unknown]
  - Erythema [Recovered/Resolved]

NARRATIVE: CASE EVENT DATE: 20171002
